FAERS Safety Report 8601327-X (Version None)
Quarter: 2012Q3

REPORT INFORMATION
  Report Type: 
  Country: None (occurrence: None)
  Receive Date: 20120817
  Receipt Date: 20120813
  Transmission Date: 20120928
  Serious: Yes (Other)
  Sender: FDA-Public Use
  Company Number: US-AMGEN-USASP2012051324

PATIENT
  Sex: Male
  Weight: 3.089 kg

DRUGS (1)
  1. ENBREL [Suspect]
     Dosage: UNK
     Route: 064

REACTIONS (1)
  - TRISOMY 21 [None]
